FAERS Safety Report 10261537 (Version 1)
Quarter: 2014Q2

REPORT INFORMATION
  Report Type: Spontaneous
  Country: DK (occurrence: FR)
  Receive Date: 20140626
  Receipt Date: 20140626
  Transmission Date: 20141212
  Serious: Yes (Hospitalization)
  Sender: FDA-Public Use
  Company Number: FR-FRI-1000068478

PATIENT
  Age: 65 Year
  Sex: Female

DRUGS (9)
  1. ESCITALOPRAM [Suspect]
     Indication: DEPRESSION
     Dosage: 5 MG
     Route: 048
     Dates: start: 20140226, end: 20140301
  2. LYRICA [Suspect]
     Dosage: 300 MG
     Route: 048
     Dates: start: 20140226, end: 20140312
  3. EFFEXOR [Concomitant]
  4. BROMAZEPAM [Concomitant]
  5. SINGULAIR [Concomitant]
  6. TELFAST [Concomitant]
  7. ESOMEPRAZOLE [Concomitant]
  8. RINOCLENIL [Concomitant]
  9. COLCHICINE [Concomitant]

REACTIONS (7)
  - Erythema multiforme [Recovered/Resolved]
  - Dyshidrotic eczema [Recovered/Resolved]
  - Eosinophilia [Recovered/Resolved]
  - Face oedema [Recovered/Resolved]
  - Cheilitis [Recovered/Resolved]
  - Vulval oedema [Recovered/Resolved]
  - Vulvovaginal erythema [Recovered/Resolved]
